FAERS Safety Report 10287736 (Version 1)
Quarter: 2014Q3

REPORT INFORMATION
  Report Type: Spontaneous
  Country: US (occurrence: US)
  Receive Date: 20140709
  Receipt Date: 20140709
  Transmission Date: 20150326
  Serious: Yes (Other)
  Sender: FDA-Public Use
  Company Number: CHPA2014US009038

PATIENT
  Age: 6 Year
  Sex: Male

DRUGS (2)
  1. KERI SHEA BUTTER [Suspect]
     Active Substance: SHEA BUTTER
     Indication: DRY SKIN
     Dosage: 1 DF, PRN
     Route: 061
  2. KERI ORIGINAL [Suspect]
     Active Substance: LANOLIN\MINERAL OIL
     Indication: DRY SKIN
     Dosage: 1 DF, PRN
     Route: 065

REACTIONS (5)
  - Drug eruption [Recovered/Resolved]
  - Gastrooesophageal reflux disease [Not Recovered/Not Resolved]
  - Self injurious behaviour [Unknown]
  - Pertussis [Not Recovered/Not Resolved]
  - Rash [Recovered/Resolved]
